FAERS Safety Report 17791009 (Version 1)
Quarter: 2020Q2

REPORT INFORMATION
  Report Type: Spontaneous
  Country: US (occurrence: US)
  Receive Date: 20200515
  Receipt Date: 20200515
  Transmission Date: 20200714
  Serious: No
  Sender: FDA-Public Use
  Company Number: US-MYLANLABS-2020M1045260

PATIENT
  Sex: Female
  Weight: 68 kg

DRUGS (1)
  1. PROCTOFOAM HC [Suspect]
     Active Substance: HYDROCORTISONE ACETATE\PRAMOXINE HYDROCHLORIDE
     Indication: HAEMORRHOIDS
     Dosage: 3 TIMES DAILY
     Route: 054
     Dates: start: 20200502

REACTIONS (2)
  - Drug ineffective [Not Recovered/Not Resolved]
  - Product use complaint [Unknown]
